FAERS Safety Report 11903719 (Version 1)
Quarter: 2016Q1

REPORT INFORMATION
  Report Type: Spontaneous
  Country: FR (occurrence: FR)
  Receive Date: 20160111
  Receipt Date: 20160111
  Transmission Date: 20160526
  Serious: Yes (Death, Hospitalization, Other)
  Sender: FDA-Public Use
  Company Number: FR-HOSPIRA-3126760

PATIENT
  Age: 16 Year
  Sex: Male

DRUGS (6)
  1. TEMOZOLOMIDE. [Suspect]
     Active Substance: TEMOZOLOMIDE
     Indication: EWING^S SARCOMA
     Dosage: START 18-MAY-2015
  2. DOXORUBICINE ACCORD [Suspect]
     Active Substance: DOXORUBICIN
     Indication: EWING^S SARCOMA
     Route: 042
     Dates: start: 20141216, end: 20150413
  3. VINCRISTINE HOSPIRA [Suspect]
     Active Substance: VINCRISTINE
     Indication: EWING^S SARCOMA
     Route: 042
     Dates: start: 20141216, end: 20150413
  4. IRINOTECAN HYDROCHLORIDE. [Suspect]
     Active Substance: IRINOTECAN HYDROCHLORIDE
     Indication: EWING^S SARCOMA
     Dosage: START 18-MAY-2015
  5. IFOSFAMIDE. [Suspect]
     Active Substance: IFOSFAMIDE
     Indication: EWING^S SARCOMA
     Route: 042
     Dates: start: 20141216, end: 20150413
  6. EPIRUBICIN HYDROCHLORIDE. [Suspect]
     Active Substance: EPIRUBICIN HYDROCHLORIDE
     Indication: EWING^S SARCOMA
     Route: 042
     Dates: start: 20141216, end: 20150413

REACTIONS (12)
  - Blood pressure increased [Unknown]
  - Pulmonary mass [Unknown]
  - Ventricular hypokinesia [Unknown]
  - Metastases to pelvis [Unknown]
  - Malaise [Unknown]
  - Ejection fraction decreased [Unknown]
  - Pallor [Unknown]
  - Death [Fatal]
  - Neuralgia [Unknown]
  - Neoplasm progression [Unknown]
  - Hypotension [Unknown]
  - Asthenia [Unknown]

NARRATIVE: CASE EVENT DATE: 20150302
